FAERS Safety Report 11449351 (Version 1)
Quarter: 2015Q3

REPORT INFORMATION
  Report Type: Spontaneous
  Country: US (occurrence: US)
  Receive Date: 20150902
  Receipt Date: 20150902
  Transmission Date: 20151125
  Serious: Yes (Death, Life-Threatening, Hospitalization, Other)
  Sender: FDA-Public Use
  Company Number: US-CONCORDIA PHARMACEUTICALS INC.-CO-LA-US-2015-037

PATIENT
  Age: 52 Year
  Sex: Female
  Weight: 118.8 kg

DRUGS (18)
  1. REMODULIN [Suspect]
     Active Substance: TREPROSTINIL
     Indication: PULMONARY ARTERIAL HYPERTENSION
     Dosage: 16 NG/KG/MIN
     Route: 058
     Dates: start: 20150218
  2. SPIRONOLACTONE. [Concomitant]
     Active Substance: SPIRONOLACTONE
  3. DIGOXIN. [Suspect]
     Active Substance: DIGOXIN
     Indication: PULMONARY ARTERIAL HYPERTENSION
     Route: 065
  4. MAGNESIUM OXIDE. [Concomitant]
     Active Substance: MAGNESIUM OXIDE
  5. ACETAMINOPHEN. [Concomitant]
     Active Substance: ACETAMINOPHEN
  6. DEXTROSE. [Concomitant]
     Active Substance: DEXTROSE
  7. NIMBEX [Suspect]
     Active Substance: CISATRACURIUM BESYLATE
     Indication: PARALYSIS
     Route: 065
     Dates: start: 20150616
  8. GLUCAGON. [Concomitant]
     Active Substance: GLUCAGON
  9. ATORVASTATIN [Concomitant]
     Active Substance: ATORVASTATIN
  10. LISPRO-INSULIN [Concomitant]
  11. ASPIRIN. [Concomitant]
     Active Substance: ASPIRIN
  12. FLUTICASONE + SALMETEROL [Concomitant]
     Active Substance: FLUTICASONE FUROATE\SALMETEROL XINAFOATE
  13. HEPARIN [Concomitant]
     Active Substance: HEPARIN SODIUM
  14. NYSTATIN. [Concomitant]
     Active Substance: NYSTATIN
  15. POTASSIUM/SODIUM PHOSPHATE [Concomitant]
  16. REMODULIN [Suspect]
     Active Substance: TREPROSTINIL
     Dosage: 25 NG/KG/MIN
     Dates: end: 20150621
  17. REVATIO [Concomitant]
     Active Substance: SILDENAFIL CITRATE
  18. ALBUTEROL SULFATE AND IPRATROPIUM [Concomitant]

REACTIONS (43)
  - Acute kidney injury [Recovered/Resolved]
  - Pulmonary hypertension [Unknown]
  - Electrocardiogram abnormal [Unknown]
  - Hypotension [Unknown]
  - Endotracheal intubation [Unknown]
  - Cardiogenic shock [Fatal]
  - Heart rate increased [Unknown]
  - Oedema [Unknown]
  - Cardiomegaly [Unknown]
  - Cardioactive drug level increased [Recovered/Resolved]
  - Sinus tachycardia [Unknown]
  - Pulmonary oedema [Unknown]
  - Breath sounds abnormal [Unknown]
  - Tachycardia [Unknown]
  - Acute respiratory failure [Unknown]
  - Pneumonia aspiration [Unknown]
  - Chest discomfort [Unknown]
  - Pulmonary congestion [Unknown]
  - Dyspnoea [Unknown]
  - Toxicity to various agents [Recovered/Resolved]
  - Blood pressure increased [Unknown]
  - Pneumonia [Unknown]
  - Infection [Unknown]
  - Pulmonary arterial hypertension [Unknown]
  - Hypovolaemia [Recovered/Resolved]
  - Pollakiuria [Unknown]
  - Asthenia [Unknown]
  - Ventricular tachycardia [Unknown]
  - Oliguria [Unknown]
  - Haemorrhage [Unknown]
  - Cardiac arrest [Fatal]
  - Hyponatraemia [Fatal]
  - Respiratory failure [Unknown]
  - Hepatic congestion [Unknown]
  - Disseminated intravascular coagulation [Unknown]
  - Pneumonitis [Unknown]
  - Gastrointestinal tube insertion [Unknown]
  - Thrombocytopenia [Unknown]
  - Hypoxia [Unknown]
  - Pulmonary veno-occlusive disease [Unknown]
  - Acute respiratory distress syndrome [Unknown]
  - Hypervolaemia [Unknown]
  - Right atrial pressure increased [Unknown]

NARRATIVE: CASE EVENT DATE: 2015
